FAERS Safety Report 8612073-0 (Version None)
Quarter: 2012Q3

REPORT INFORMATION
  Report Type: 
  Country: None (occurrence: None)
  Receive Date: 20120822
  Receipt Date: 20120813
  Transmission Date: 20120928
  Serious: Yes (Other)
  Sender: FDA-Public Use
  Company Number: US-ASTRAZENECA-2012SE50288

PATIENT
  Age: 68 Year
  Sex: Female

DRUGS (4)
  1. PRILOSEC OTC [Suspect]
     Route: 048
  2. RANITIDINE [Suspect]
  3. NEXIUM [Suspect]
     Route: 048
  4. PANTOPRAZOLE [Suspect]
     Route: 065

REACTIONS (5)
  - OVARIAN CANCER STAGE III [None]
  - RASH [None]
  - COUGH [None]
  - DRUG DOSE OMISSION [None]
  - DRUG INEFFECTIVE [None]
